FAERS Safety Report 25591548 (Version 7)
Quarter: 2025Q3

REPORT INFORMATION
  Report Type: Report from Study
  Country: ZA (occurrence: ZA)
  Receive Date: 20250722
  Receipt Date: 20250905
  Transmission Date: 20251021
  Serious: Yes (Other)
  Sender: NOVARTIS
  Company Number: ZA-002147023-NVSC2025ZA115129

PATIENT
  Age: 47 Year
  Sex: Female

DRUGS (14)
  1. OFATUMUMAB [Suspect]
     Active Substance: OFATUMUMAB
     Indication: Relapsing-remitting multiple sclerosis
     Dosage: 20 MG, QW
     Route: 058
     Dates: start: 20250709
  2. OFATUMUMAB [Suspect]
     Active Substance: OFATUMUMAB
     Indication: Relapsing multiple sclerosis
     Dosage: 20 MG, QW
     Route: 058
     Dates: start: 20250716
  3. OFATUMUMAB [Suspect]
     Active Substance: OFATUMUMAB
     Indication: Multiple sclerosis
     Dosage: 20 MG, QMO
     Route: 058
     Dates: start: 20250723
  4. OFATUMUMAB [Suspect]
     Active Substance: OFATUMUMAB
     Dosage: 20 MG, QMO
     Route: 058
     Dates: start: 20250806
  5. Synaleve [Concomitant]
     Indication: Product used for unknown indication
     Route: 065
  6. PREGABALIN [Concomitant]
     Active Substance: PREGABALIN
     Indication: Product used for unknown indication
     Dosage: 800 MG, BID (MORNINGS AND EVENINGS)
     Route: 065
  7. VALPROIC ACID [Concomitant]
     Active Substance: VALPROIC ACID
     Indication: Product used for unknown indication
     Dosage: 800, BID (MORNINGS AND EVENINGS)
     Route: 065
  8. LAMOTRIGINE [Concomitant]
     Active Substance: LAMOTRIGINE
     Indication: Product used for unknown indication
     Dosage: 150, QD (MORNING)
     Route: 065
  9. Odiven [Concomitant]
     Indication: Product used for unknown indication
     Dosage: 225, QD (MORNING)
     Route: 065
  10. NEUROBION [Concomitant]
     Active Substance: CYANOCOBALAMIN\PYRIDOXINE\THIAMINE
     Indication: Product used for unknown indication
     Dosage: UNK, QD (MORNING)
     Route: 065
  11. RIVOTRIL [Concomitant]
     Active Substance: CLONAZEPAM
     Indication: Product used for unknown indication
     Dosage: 0.5 DOSAGE FORM, QD (0.5 MG) (EVENING)
     Route: 065
  12. MAGNESIUM CHLORIDE [Concomitant]
     Active Substance: MAGNESIUM CHLORIDE
     Indication: Product used for unknown indication
     Dosage: UNK, QD (EVENING)
     Route: 065
  13. ERGOCALCIFEROL [Concomitant]
     Active Substance: ERGOCALCIFEROL
     Indication: Product used for unknown indication
     Dosage: 50 000, BIW
     Route: 065
  14. COPAXONE [Concomitant]
     Active Substance: GLATIRAMER ACETATE
     Indication: Relapsing multiple sclerosis
     Route: 065

REACTIONS (13)
  - Injection site swelling [Recovering/Resolving]
  - Influenza like illness [Recovering/Resolving]
  - Pyrexia [Recovering/Resolving]
  - Pain [Recovering/Resolving]
  - Feeling cold [Unknown]
  - Fatigue [Unknown]
  - Lymphadenopathy [Recovering/Resolving]
  - Seizure [Recovered/Resolved]
  - Multiple sclerosis [Unknown]
  - Injection site discolouration [Unknown]
  - Injection site pain [Unknown]
  - Adverse drug reaction [Unknown]
  - Asthenia [Unknown]

NARRATIVE: CASE EVENT DATE: 20250709
